FAERS Safety Report 9223819 (Version 1)
Quarter: 2013Q2

REPORT INFORMATION
  Report Type: Spontaneous
  Country: FI (occurrence: FI)
  Receive Date: 20130410
  Receipt Date: 20130410
  Transmission Date: 20140414
  Serious: Yes (Hospitalization, Other)
  Sender: FDA-Public Use
  Company Number: FI-UCBSA-082193

PATIENT
  Age: 61 Year
  Sex: Female

DRUGS (9)
  1. CIMZIA [Suspect]
     Indication: RHEUMATOID ARTHRITIS
     Dates: start: 201301, end: 2013
  2. ARAVA [Concomitant]
     Indication: RHEUMATOID ARTHRITIS
  3. CRESTRO [Concomitant]
  4. DIOVAN COMP [Concomitant]
     Indication: HYPERTENSION
     Dosage: STRENGTH: 160MGX 125MG; 1/2 TABLET ONCE A DAY
  5. KALCIPOS-D [Concomitant]
  6. ORLOC [Concomitant]
  7. EMCONCOR [Concomitant]
     Indication: HYPERTENSION
  8. ZANIDIP [Concomitant]
     Indication: HYPERTENSION
  9. ARCOXIA [Concomitant]
     Indication: PAIN
     Dosage: 190 MG

REACTIONS (6)
  - Convulsion [Recovered/Resolved]
  - Encephalitis [Unknown]
  - Epilepsy [Unknown]
  - Memory impairment [Not Recovered/Not Resolved]
  - Confusional state [Recovered/Resolved]
  - Gait disturbance [Recovered/Resolved]
